FAERS Safety Report 17569357 (Version 5)
Quarter: 2020Q2

REPORT INFORMATION
  Report Type: Spontaneous
  Country: JP (occurrence: JP)
  Receive Date: 20200322
  Receipt Date: 20200520
  Transmission Date: 20200713
  Serious: Yes (Death, Hospitalization, Other)
  Sender: FDA-Public Use
  Company Number: JP-BRISTOL-MYERS SQUIBB COMPANY-BMS-2020-023612

PATIENT
  Age: 55 Year
  Sex: Male
  Weight: 71.8 kg

DRUGS (6)
  1. BROTIZOLAM [Concomitant]
     Active Substance: BROTIZOLAM
     Indication: INSOMNIA
     Dosage: 0.25 MILLIGRAM, QD
     Route: 048
     Dates: end: 20200310
  2. AMBROXOL HYDROCHLORIDE [Concomitant]
     Active Substance: AMBROXOL HYDROCHLORIDE
     Indication: PRODUCT USED FOR UNKNOWN INDICATION
     Dosage: 45 MG, EVERYDAY
     Route: 048
     Dates: end: 20200310
  3. ROSUVASTATIN OD [Concomitant]
     Indication: HYPERLIPIDAEMIA
     Dosage: 2.5 MG, EVERYDAY
     Route: 048
     Dates: end: 20200310
  4. OPDIVO [Suspect]
     Active Substance: NIVOLUMAB
     Indication: NON-SMALL CELL LUNG CANCER RECURRENT
     Dosage: 240 MILLIGRAM, Q2WK
     Route: 041
     Dates: start: 20200220, end: 20200305
  5. DOCETAXEL. [Suspect]
     Active Substance: DOCETAXEL
     Indication: NON-SMALL CELL LUNG CANCER RECURRENT
     Dosage: 105 MILLIGRAM
     Route: 041
     Dates: start: 20200220, end: 20200220
  6. HUSCODE [Concomitant]
     Active Substance: CHLORPHENIRAMINE MALEATE\DIHYDROCODEINE PHOSPHATE\METHYLEPHEDRINE HYDROCHLORIDE, DL-
     Indication: PRODUCT USED FOR UNKNOWN INDICATION
     Dosage: 2 DOSAGE FORM, Q8H
     Route: 048
     Dates: start: 20200304, end: 20200310

REACTIONS (8)
  - Myasthenia gravis [Fatal]
  - Alanine aminotransferase increased [Not Recovered/Not Resolved]
  - White blood cell count decreased [Recovered/Resolved]
  - Febrile neutropenia [Unknown]
  - Aspartate aminotransferase increased [Not Recovered/Not Resolved]
  - Myositis [Unknown]
  - Neutrophil count decreased [Recovered/Resolved]
  - Hepatic function abnormal [Unknown]

NARRATIVE: CASE EVENT DATE: 20200227
